FAERS Safety Report 19119740 (Version 2)
Quarter: 2021Q2

REPORT INFORMATION
  Report Type: Spontaneous
  Country: GB (occurrence: GB)
  Receive Date: 20210412
  Receipt Date: 20210417
  Transmission Date: 20210717
  Serious: Yes (Other)
  Sender: FDA-Public Use
  Company Number: GB-AUROBINDO-AUR-APL-2021-014811

PATIENT
  Age: 29 Year
  Sex: Female
  Weight: 70 kg

DRUGS (1)
  1. CLARITHROMYCIN FILM?COATED TABLET [Suspect]
     Active Substance: CLARITHROMYCIN
     Indication: BACTERIAL INFECTION
     Dosage: 500 MILLIGRAM
     Route: 048
     Dates: start: 20210221, end: 20210222

REACTIONS (3)
  - Palpitations [Recovered/Resolved]
  - Asthenia [Unknown]
  - Tremor [Unknown]

NARRATIVE: CASE EVENT DATE: 20210222
